FAERS Safety Report 22619159 (Version 1)
Quarter: 2023Q2

REPORT INFORMATION
  Report Type: Other
  Country: DE (occurrence: None)
  Receive Date: 20230620
  Receipt Date: 20230620
  Transmission Date: 20230721
  Serious: No
  Sender: FDA-Public Use
  Company Number: DE-ROCHE-3370524

PATIENT
  Age: 47 Year
  Sex: Female

DRUGS (1)
  1. OCRELIZUMAB [Suspect]
     Active Substance: OCRELIZUMAB
     Indication: Relapsing multiple sclerosis
     Dosage: MOST RECENT DOSE: 12/NOV/2021
     Route: 042
     Dates: start: 20211028

REACTIONS (1)
  - Coronavirus test positive [Recovering/Resolving]

NARRATIVE: CASE EVENT DATE: 20220120
